FAERS Safety Report 19157402 (Version 1)
Quarter: 2021Q2

REPORT INFORMATION
  Report Type: Spontaneous
  Country: JP (occurrence: JP)
  Receive Date: 20210420
  Receipt Date: 20210420
  Transmission Date: 20210717
  Serious: Yes (Hospitalization, Other)
  Sender: FDA-Public Use
  Company Number: JP-GLAXOSMITHKLINE-JP2021084727

PATIENT
  Age: 8 Decade
  Sex: Male

DRUGS (1)
  1. AVOLVE [Suspect]
     Active Substance: DUTASTERIDE
     Indication: BENIGN PROSTATIC HYPERPLASIA
     Dosage: UNK
     Route: 048
     Dates: start: 202007

REACTIONS (5)
  - Tinnitus [Recovered/Resolved]
  - Inner ear disorder [Unknown]
  - Vertigo [Recovered/Resolved]
  - Meniere^s disease [Unknown]
  - Stress [Unknown]

NARRATIVE: CASE EVENT DATE: 2020
